FAERS Safety Report 14885346 (Version 2)
Quarter: 2018Q2

REPORT INFORMATION
  Report Type: Spontaneous
  Country: BR (occurrence: BR)
  Receive Date: 20180511
  Receipt Date: 20180529
  Transmission Date: 20180711
  Serious: Yes (Disabling)
  Sender: FDA-Public Use
  Company Number: BR-B.I. PHARMACEUTICALS,INC./RIDGEFIELD-2018-BI-025474

PATIENT
  Age: 70 Year
  Sex: Female
  Weight: 62 kg

DRUGS (3)
  1. ATENSINA [Suspect]
     Active Substance: CLONIDINE
     Route: 048
     Dates: start: 20180423, end: 20180513
  2. ATENSINA [Suspect]
     Active Substance: CLONIDINE
     Route: 048
     Dates: start: 20180514
  3. ATENSINA [Suspect]
     Active Substance: CLONIDINE
     Indication: BLOOD PRESSURE MEASUREMENT
     Route: 048
     Dates: start: 2010, end: 201804

REACTIONS (7)
  - Somnolence [Recovered/Resolved]
  - Hypertension [Unknown]
  - Blood pressure fluctuation [Recovered/Resolved]
  - Blood pressure abnormal [Recovered/Resolved]
  - Drug ineffective [Unknown]
  - Dizziness [Recovered/Resolved]
  - Head discomfort [Recovered/Resolved]

NARRATIVE: CASE EVENT DATE: 201805
